FAERS Safety Report 17906063 (Version 1)
Quarter: 2020Q2

REPORT INFORMATION
  Report Type: Spontaneous
  Country: JP (occurrence: JP)
  Receive Date: 20200617
  Receipt Date: 20200617
  Transmission Date: 20200714
  Serious: Yes (Death, Hospitalization, Other)
  Sender: FDA-Public Use
  Company Number: JP-ALVOGEN-2020-ALVOGEN-108594

PATIENT
  Age: 23 Year
  Sex: Male

DRUGS (1)
  1. VORICONAZOLE. [Suspect]
     Active Substance: VORICONAZOLE
     Indication: PROPHYLAXIS
     Route: 048

REACTIONS (4)
  - Cerebral infarction [Fatal]
  - Infection [Fatal]
  - Mucormycosis [Fatal]
  - Pneumonia [Fatal]
